FAERS Safety Report 9264980 (Version 1)
Quarter: 2013Q2

REPORT INFORMATION
  Report Type: Spontaneous
  Country: US (occurrence: None)
  Receive Date: 20130425
  Receipt Date: 20130425
  Transmission Date: 20140414
  Serious: Yes (Other)
  Sender: FDA-Public Use
  Company Number: SYM-2013-02896

PATIENT
  Age: 77 Year
  Sex: Male

DRUGS (7)
  1. 5-FU [Suspect]
     Indication: ACTINIC KERATOSIS
     Route: 061
  2. LISINOPRIL (LISINOPRIL) (LISINOPRIL) [Suspect]
     Indication: PRODUCT USED FOR UNKNOWN INDICATION
  3. METFORMIN (METFORMIN) (METFORMIN) [Concomitant]
  4. BENADRYL (DIPHENHYDRAMINE HYDROCHLORIDE) (DIPHENHYDROCHLORIDE HYDROCHLORIDE) [Concomitant]
  5. TRIAMCINOLONE (TRIAMCINOLONE) (TRIAMCINOLONE) [Concomitant]
  6. PREDNISONE (PREDNISONE) (PREDNISONE) [Concomitant]
  7. CORTICOSTEROIDS (CORTICOSTEROIDS) [Concomitant]

REACTIONS (8)
  - Presyncope [None]
  - Dysphonia [None]
  - Pruritus [None]
  - Oedema peripheral [None]
  - Face oedema [None]
  - Local swelling [None]
  - Lip swelling [None]
  - Incorrect dose administered [None]
